FAERS Safety Report 9146302 (Version 1)
Quarter: 2013Q1

REPORT INFORMATION
  Report Type: Spontaneous
  Country: IE (occurrence: IE)
  Receive Date: 20130307
  Receipt Date: 20130307
  Transmission Date: 20140127
  Serious: Yes (Hospitalization)
  Sender: FDA-Public Use
  Company Number: IE-JNJFOC-20130217372

PATIENT
  Age: 4 Year
  Sex: Male

DRUGS (4)
  1. CALPOL [Suspect]
     Indication: IRRITABILITY
     Dosage: 240 MG, 4 TIMES PER DAY
     Route: 048
     Dates: start: 20130201, end: 20130204
  2. CALPOL [Suspect]
     Indication: PYREXIA
     Dosage: 240 MG, 4 TIMES PER DAY
     Route: 048
     Dates: start: 20130201, end: 20130204
  3. PARALINK [Suspect]
     Indication: IRRITABILITY
     Dosage: 540 MG PER DAY
     Route: 048
     Dates: start: 20130202, end: 20130204
  4. PARALINK [Suspect]
     Indication: PYREXIA
     Dosage: 540 MG PER DAY
     Route: 048
     Dates: start: 20130202, end: 20130204

REACTIONS (3)
  - Medication error [Recovered/Resolved]
  - Accidental overdose [Recovered/Resolved]
  - No adverse event [Recovered/Resolved]
